FAERS Safety Report 18149057 (Version 2)
Quarter: 2020Q3

REPORT INFORMATION
  Report Type: Report from Study
  Country: US (occurrence: US)
  Receive Date: 20200813
  Receipt Date: 20200816
  Transmission Date: 20201103
  Serious: No
  Sender: FDA-Public Use
  Company Number: NVSC2020US170678

PATIENT
  Sex: Male

DRUGS (3)
  1. COSENTYX [Suspect]
     Active Substance: SECUKINUMAB
     Dosage: UNK, QW(FOR 5 WEEKS)
     Route: 058
  2. COSENTYX [Suspect]
     Active Substance: SECUKINUMAB
     Dosage: UNK, QMO
     Route: 058
  3. COSENTYX [Suspect]
     Active Substance: SECUKINUMAB
     Indication: PSORIATIC ARTHROPATHY
     Dosage: UNK, Q4W
     Route: 058
     Dates: start: 202003

REACTIONS (4)
  - Pain in extremity [Unknown]
  - Weight increased [Unknown]
  - Arthralgia [Unknown]
  - Back pain [Unknown]
